FAERS Safety Report 17238647 (Version 1)
Quarter: 2020Q1

REPORT INFORMATION
  Report Type: Spontaneous
  Country: US (occurrence: US)
  Receive Date: 20200105
  Receipt Date: 20200105
  Transmission Date: 20200409
  Serious: Yes (Other)
  Sender: FDA-Public Use
  Company Number: None

PATIENT
  Age: 77 Year
  Sex: Male
  Weight: 76.5 kg

DRUGS (13)
  1. DUROLANE [Suspect]
     Active Substance: HYALURONIC ACID
     Indication: ARTHRITIS
     Dosage: ?          QUANTITY:1 INJECTION(S);OTHER FREQUENCY:1 SHOT EVERY 6 MON;OTHER ROUTE:INJECTED INTO KNEE?
  2. ATIVAN 1 MG [Concomitant]
  3. CALCIUM [Concomitant]
     Active Substance: CALCIUM
  4. MULTIVITAMIN [Concomitant]
     Active Substance: VITAMINS
  5. COUMADIN [Suspect]
     Active Substance: WARFARIN SODIUM
  6. PREDNISONE 20 MG [Concomitant]
     Active Substance: PREDNISONE
  7. TYLENOL WITH CODEINE [Concomitant]
     Active Substance: ACETAMINOPHEN\CODEINE PHOSPHATE
  8. COSOPT [Concomitant]
     Active Substance: DORZOLAMIDE HYDROCHLORIDE\TIMOLOL MALEATE
  9. VITAMIN D [Concomitant]
     Active Substance: VITAMIN D NOS
  10. XALATAN [Concomitant]
     Active Substance: LATANOPROST
  11. PROBIOTIC [Concomitant]
     Active Substance: PROBIOTICS NOS
  12. ZETIA 10 MG [Concomitant]
  13. VITAMIN C [Concomitant]
     Active Substance: ASCORBIC ACID

REACTIONS (3)
  - International normalised ratio increased [None]
  - Polymyalgia rheumatica [None]
  - Musculoskeletal pain [None]

NARRATIVE: CASE EVENT DATE: 20191008
